FAERS Safety Report 16298636 (Version 1)
Quarter: 2019Q2

REPORT INFORMATION
  Report Type: Spontaneous
  Country: US (occurrence: US)
  Receive Date: 20190510
  Receipt Date: 20190510
  Transmission Date: 20190711
  Serious: Yes (Other)
  Sender: FDA-Public Use
  Company Number: US-ASTRAZENECA-2019SE70037

PATIENT
  Age: 27424 Day
  Sex: Male
  Weight: 91.6 kg

DRUGS (6)
  1. ROSUVASTATIN. [Suspect]
     Active Substance: ROSUVASTATIN
     Indication: BLOOD CHOLESTEROL ABNORMAL
     Route: 048
  2. BRILINTA [Suspect]
     Active Substance: TICAGRELOR
     Indication: CORONARY ARTERY OCCLUSION
     Route: 048
     Dates: start: 201810
  3. BRILINTA [Suspect]
     Active Substance: TICAGRELOR
     Indication: CORONARY ARTERY OCCLUSION
     Route: 048
     Dates: start: 20190430
  4. BRILINTA [Suspect]
     Active Substance: TICAGRELOR
     Indication: STENT PLACEMENT
     Route: 048
     Dates: start: 201810
  5. BRILINTA [Suspect]
     Active Substance: TICAGRELOR
     Indication: STENT PLACEMENT
     Route: 048
     Dates: start: 20190430
  6. ASPIRIN. [Concomitant]
     Active Substance: ASPIRIN
     Dosage: 250 ONCE PER WEEK

REACTIONS (13)
  - Blood cholesterol increased [Unknown]
  - Product dose omission [Recovered/Resolved]
  - Limb injury [Recovering/Resolving]
  - Musculoskeletal pain [Recovering/Resolving]
  - Off label use [Not Recovered/Not Resolved]
  - Coronary artery occlusion [Unknown]
  - Abnormal faeces [Unknown]
  - Arthralgia [Unknown]
  - Bursitis [Unknown]
  - Renal pain [Unknown]
  - Dyspepsia [Recovered/Resolved]
  - Dyspnoea [Recovered/Resolved]
  - Fatigue [Recovered/Resolved]

NARRATIVE: CASE EVENT DATE: 201810
